FAERS Safety Report 7362526-0 (Version None)
Quarter: 2011Q1

REPORT INFORMATION
  Report Type: 
  Country: None (occurrence: None)
  Receive Date: 20110318
  Receipt Date: 20110309
  Transmission Date: 20110831
  Serious: Yes (Hospitalization)
  Sender: FDA-Public Use
  Company Number: US-ASTRAZENECA-2009SE14223

PATIENT
  Age: 43 Year
  Sex: Male
  Weight: 117 kg

DRUGS (9)
  1. SEROQUEL [Suspect]
     Dosage: 100 MG IN MORNING, 125 MG IN AFTERNOON AND 125 MG AT NIGHT  (TOTAL DOSE 350 MG)
     Route: 048
  2. SEROQUEL [Suspect]
     Indication: SLEEP DISORDER
     Route: 048
     Dates: start: 20050101
  3. SEROQUEL [Suspect]
     Indication: BEHAVIOURAL AND PSYCHIATRIC SYMPTOMS OF DEMENTIA
     Route: 048
     Dates: start: 20050101
  4. SEROQUEL [Suspect]
     Route: 048
  5. SEROQUEL [Suspect]
     Dosage: 100 MG IN MORNING, 125 MG IN AFTERNOON AND 125 MG AT NIGHT  (TOTAL DOSE 350 MG)
     Route: 048
  6. PROPRANOLOL [Concomitant]
     Indication: HYPERTENSION
  7. SEROQUEL [Suspect]
     Route: 048
  8. LAMICTAL [Concomitant]
     Indication: CONVULSION
  9. GEODON [Concomitant]

REACTIONS (17)
  - ABNORMAL BEHAVIOUR [None]
  - SCREAMING [None]
  - DRUG DOSE OMISSION [None]
  - WEIGHT INCREASED [None]
  - PROTEIN TOTAL DECREASED [None]
  - BRONCHITIS [None]
  - COMMUNICATION DISORDER [None]
  - WALKING AID USER [None]
  - NIGHTMARE [None]
  - SOMNOLENCE [None]
  - LOWER LIMB FRACTURE [None]
  - BLOOD GLUCOSE INCREASED [None]
  - FALL [None]
  - EXERCISE LACK OF [None]
  - AGITATION [None]
  - SOCIAL AVOIDANT BEHAVIOUR [None]
  - ALANINE AMINOTRANSFERASE INCREASED [None]
